FAERS Safety Report 16383537 (Version 2)
Quarter: 2019Q3

REPORT INFORMATION
  Report Type: Spontaneous
  Country: US (occurrence: US)
  Receive Date: 20190603
  Receipt Date: 20190723
  Transmission Date: 20191004
  Serious: Yes (Death, Hospitalization, Other)
  Sender: FDA-Public Use
  Company Number: US-PFIZER INC-2019230013

PATIENT
  Age: 70 Year
  Sex: Male

DRUGS (3)
  1. ABELCET [Concomitant]
     Active Substance: AMPHOTERICIN B\DIMYRISTOYLPHOSPHATIDYLCHOLINE, DL-\DIMYRISTOYLPHOSPHATIDYLGLYCEROL, DL-
     Indication: ANTIFUNGAL TREATMENT
     Dosage: UNK (UNSPECIFIED DOSE IN 500 ML )
     Route: 041
     Dates: start: 20190503
  2. VFEND [Suspect]
     Active Substance: VORICONAZOLE
     Indication: PNEUMONIA FUNGAL
     Dosage: 200 MG, 2X/DAY
     Dates: start: 20190403, end: 20190512
  3. MYCAMINE [Concomitant]
     Active Substance: MICAFUNGIN SODIUM
     Indication: ANTIFUNGAL TREATMENT
     Dosage: UNK [100 MG VIALS. UNSURE OF EXACT DOSE]
     Route: 041
     Dates: start: 201904

REACTIONS (6)
  - Dyspnoea [Unknown]
  - Abdominal distension [Unknown]
  - Bronchopulmonary aspergillosis [Unknown]
  - Aspergillus infection [Unknown]
  - Acute myeloid leukaemia [Fatal]
  - Haemorrhage [Unknown]
